FAERS Safety Report 4562994-3 (Version None)
Quarter: 2005Q1

REPORT INFORMATION
  Report Type: 
  Country: None (occurrence: None)
  Receive Date: 20050121
  Receipt Date: 20050110
  Transmission Date: 20050727
  Serious: Yes (Hospitalization)
  Sender: FDA-Public Use
  Company Number: 2005010775

PATIENT
  Age: 31 Year
  Sex: Female

DRUGS (3)
  1. DOSTINEX [Suspect]
     Indication: ILL-DEFINED DISORDER
     Dosage: 2 DOSE FORMS EVERY WEEK, ORAL
     Route: 048
     Dates: end: 20041109
  2. BROMOCRIPTINE MESYLATE [Suspect]
     Indication: HYPOTHALAMO-PITUITARY DISORDERS
     Dosage: ORAL
     Route: 048
     Dates: start: 19960101, end: 19970731
  3. QUINAGOLIDE (QUINAGOLIDE) [Suspect]
     Indication: ILL-DEFINED DISORDER
     Dosage: ORAL
     Route: 048
     Dates: start: 19970701, end: 19991031

REACTIONS (2)
  - BREAST NEOPLASM [None]
  - PREGNANCY [None]
